FAERS Safety Report 13752532 (Version 1)
Quarter: 2017Q3

REPORT INFORMATION
  Report Type: Spontaneous
  Country: CN (occurrence: CN)
  Receive Date: 20170713
  Receipt Date: 20170713
  Transmission Date: 20171127
  Serious: Yes (Other)
  Sender: FDA-Public Use
  Company Number: CN-JNJFOC-20170708960

PATIENT
  Age: 70 Year
  Sex: Male

DRUGS (2)
  1. AESCUVEN FORTE [Suspect]
     Active Substance: HERBALS
     Indication: DEEP VEIN THROMBOSIS
     Route: 065
     Dates: start: 201301
  2. XARELTO [Suspect]
     Active Substance: RIVAROXABAN
     Indication: THROMBOSIS PROPHYLAXIS
     Route: 048
     Dates: start: 201301

REACTIONS (2)
  - Feeding disorder [Unknown]
  - Cerebral infarction [Unknown]

NARRATIVE: CASE EVENT DATE: 2017
